FAERS Safety Report 11238554 (Version 1)
Quarter: 2015Q3

REPORT INFORMATION
  Report Type: Spontaneous
  Country: US (occurrence: US)
  Receive Date: 20150705
  Receipt Date: 20150705
  Transmission Date: 20151125
  Serious: Yes (Other)
  Sender: FDA-Public Use
  Company Number: US-GILEAD-2015-0160924

PATIENT
  Age: 66 Year
  Sex: Male

DRUGS (2)
  1. EFFIENT [Concomitant]
     Active Substance: PRASUGREL HYDROCHLORIDE
  2. RANEXA [Suspect]
     Active Substance: RANOLAZINE
     Indication: PRODUCT USED FOR UNKNOWN INDICATION
     Dosage: 1000 MG, BID
     Route: 065

REACTIONS (9)
  - Stent placement [Unknown]
  - Tendonitis [Unknown]
  - Implantable defibrillator insertion [Unknown]
  - Muscle swelling [Unknown]
  - Cyst [Unknown]
  - Pain in extremity [Unknown]
  - Peripheral coldness [Unknown]
  - Overdose [Unknown]
  - Erythema [Unknown]
